FAERS Safety Report 6202358-X (Version None)
Quarter: 2009Q2

REPORT INFORMATION
  Report Type: 
  Country: None (occurrence: None)
  Receive Date: 20090526
  Receipt Date: 20090519
  Transmission Date: 20091009
  Serious: No
  Sender: FDA-Public Use
  Company Number: US-B.I. PHARMACEUTICALS,INC./RIDGEFIELD-2009-BP-06260BP

PATIENT
  Age: 58 Year
  Sex: Female

DRUGS (2)
  1. MICARDIS [Suspect]
     Indication: HYPERTENSION
     Dosage: 40MG
     Route: 048
     Dates: start: 20080101, end: 20090401
  2. MICARDIS [Suspect]
     Dosage: 80MG
     Route: 048
     Dates: start: 20090401

REACTIONS (2)
  - DRUG INEFFECTIVE [None]
  - RASH [None]
